FAERS Safety Report 14389349 (Version 2)
Quarter: 2018Q4

REPORT INFORMATION
  Report Type: Spontaneous
  Country: US (occurrence: US)
  Receive Date: 20180115
  Receipt Date: 20181130
  Transmission Date: 20190204
  Serious: Yes (Other)
  Sender: FDA-Public Use
  Company Number: US-SA-2017SA242345

PATIENT
  Age: 82 Year
  Sex: Female
  Weight: 77.1 kg

DRUGS (10)
  1. TAXOTERE [Suspect]
     Active Substance: DOCETAXEL
     Dosage: 165 MG,UNK(OTHER: 5 WEEKS)
     Route: 042
     Dates: start: 20080724, end: 20080724
  2. CRESTOR [Concomitant]
     Active Substance: ROSUVASTATIN CALCIUM
  3. LISINOPRIL. [Concomitant]
     Active Substance: LISINOPRIL
  4. HERCEPTIN [Concomitant]
     Active Substance: TRASTUZUMAB
  5. ATENOLOL. [Concomitant]
     Active Substance: ATENOLOL
  6. ECOTRIN [Concomitant]
     Active Substance: ASPIRIN
  7. TAXOTERE [Suspect]
     Active Substance: DOCETAXEL
     Indication: BREAST CANCER FEMALE
     Dosage: 165 MG,UNK (OTHER: 5 WEEKS)
     Route: 042
     Dates: start: 20080522, end: 20080522
  8. DOXORUBICIN [Concomitant]
     Active Substance: DOXORUBICIN
  9. AMLODIPINE [Concomitant]
     Active Substance: AMLODIPINE BESYLATE
  10. METOPROLOL SUCCINATE. [Concomitant]
     Active Substance: METOPROLOL SUCCINATE

REACTIONS (2)
  - Psychological trauma [Unknown]
  - Alopecia [Recovering/Resolving]

NARRATIVE: CASE EVENT DATE: 20170608
